FAERS Safety Report 16202654 (Version 1)
Quarter: 2019Q2

REPORT INFORMATION
  Report Type: Spontaneous
  Country: TR (occurrence: TR)
  Receive Date: 20190416
  Receipt Date: 20190416
  Transmission Date: 20190711
  Serious: Yes (Death, Other)
  Sender: FDA-Public Use
  Company Number: TR-ABBVIE-19K-161-2745835-00

PATIENT
  Age: 65 Year
  Sex: Female
  Weight: 42 kg

DRUGS (2)
  1. VENCLYXTO [Suspect]
     Active Substance: VENETOCLAX
     Indication: ACUTE MYELOID LEUKAEMIA
     Route: 048
     Dates: start: 20190402, end: 20190408
  2. DACOGEN [Concomitant]
     Active Substance: DECITABINE
     Indication: ACUTE MYELOID LEUKAEMIA
     Dates: start: 20190406

REACTIONS (3)
  - Myocardial infarction [Recovered/Resolved]
  - Myocardial infarction [Fatal]
  - Myocardial necrosis marker increased [Not Recovered/Not Resolved]

NARRATIVE: CASE EVENT DATE: 20190407
